FAERS Safety Report 14938025 (Version 3)
Quarter: 2018Q2

REPORT INFORMATION
  Report Type: Spontaneous
  Country: GB (occurrence: GB)
  Receive Date: 20180525
  Receipt Date: 20180627
  Transmission Date: 20180711
  Serious: Yes (Hospitalization, Other)
  Sender: FDA-Public Use
  Company Number: GB-PFIZER INC-2018214395

PATIENT
  Age: 61 Year
  Sex: Male

DRUGS (2)
  1. INLYTA [Suspect]
     Active Substance: AXITINIB
     Dosage: 5 MG, 2X/DAY
  2. INLYTA [Suspect]
     Active Substance: AXITINIB
     Indication: METASTATIC RENAL CELL CARCINOMA
     Dosage: 5 MG, UNK
     Dates: start: 201509

REACTIONS (11)
  - Haematuria [Recovered/Resolved]
  - Blood thyroid stimulating hormone increased [Recovered/Resolved]
  - Second primary malignancy [Unknown]
  - Prostate cancer [Unknown]
  - Dyspnoea [Unknown]
  - Acute kidney injury [Recovered/Resolved]
  - Blood pressure increased [Recovered/Resolved]
  - Neoplasm progression [Unknown]
  - Pleural effusion [Unknown]
  - Haemoglobin abnormal [Recovered/Resolved]
  - Proteinuria [Unknown]

NARRATIVE: CASE EVENT DATE: 201510
